FAERS Safety Report 25064533 (Version 1)
Quarter: 2025Q1

REPORT INFORMATION
  Report Type: Spontaneous
  Country: JP (occurrence: JP)
  Receive Date: 20250311
  Receipt Date: 20250311
  Transmission Date: 20250409
  Serious: Yes (Other)
  Sender: ELI LILLY AND COMPANY
  Company Number: JP-ELI_LILLY_AND_COMPANY-JP202503005571

PATIENT
  Weight: 79.1 kg

DRUGS (3)
  1. GEMCITABINE HYDROCHLORIDE [Suspect]
     Active Substance: GEMCITABINE HYDROCHLORIDE
     Indication: Product used for unknown indication
     Route: 041
  2. NECITUMUMAB [Suspect]
     Active Substance: NECITUMUMAB
     Indication: Product used for unknown indication
     Route: 041
  3. CISPLATIN [Concomitant]
     Active Substance: CISPLATIN
     Indication: Product used for unknown indication

REACTIONS (8)
  - Constipation [Unknown]
  - Skin fissures [Unknown]
  - Taste disorder [Recovered/Resolved]
  - Neuropathy peripheral [Unknown]
  - Dyspnoea [Unknown]
  - Stomatitis [Recovering/Resolving]
  - Nausea [Unknown]
  - Skin disorder [Unknown]
